FAERS Safety Report 9505954 (Version 1)
Quarter: 2013Q1

REPORT INFORMATION
  Report Type: Spontaneous
  Country: US (occurrence: None)
  Receive Date: 20130305
  Receipt Date: 20130305
  Transmission Date: 20140127
  Serious: No
  Sender: FDA-Public Use
  Company Number: 1000040706

PATIENT
  Age: 71 Year
  Sex: Female
  Weight: 140 kg

DRUGS (5)
  1. DALIRESP (ROFLUMILAST) (500 MICROGRAM, TABLETS) [Suspect]
     Indication: CHRONIC OBSTRUCTIVE PULMONARY DISEASE
     Route: 048
     Dates: start: 20121116
  2. DULERA (DULERA) (DULERA) [Concomitant]
  3. COUMADIN SODIUM (WARFARIN SODIUM) (WARFARIN SODIUM) [Concomitant]
  4. DIGOXIN (DIGOXIN) (DIGOXIN) [Concomitant]
  5. METFORMIN (METFORMIN) (METFORMIN) [Concomitant]

REACTIONS (1)
  - Weight decreased [None]
